FAERS Safety Report 15642843 (Version 2)
Quarter: 2018Q4

REPORT INFORMATION
  Report Type: Spontaneous
  Country: US (occurrence: US)
  Receive Date: 20181121
  Receipt Date: 20181204
  Transmission Date: 20190205
  Serious: Yes (Other)
  Sender: FDA-Public Use
  Company Number: US-CONCORDIA PHARMACEUTICALS INC.-GSH201811-003967

PATIENT
  Age: 67 Year
  Sex: Male

DRUGS (9)
  1. ZYTIGA [Suspect]
     Active Substance: ABIRATERONE ACETATE
     Dates: start: 201505
  2. ENZALUTAMIDE [Suspect]
     Active Substance: ENZALUTAMIDE
     Dates: start: 201605
  3. TRELSTAR [Suspect]
     Active Substance: TRIPTORELIN PAMOATE
     Dates: start: 201308
  4. DOCATAXEL [Suspect]
     Active Substance: DOCETAXEL
     Dates: start: 201704
  5. PREDNISONE. [Suspect]
     Active Substance: PREDNISONE
     Dates: start: 201505
  6. NILANDRON [Suspect]
     Active Substance: NILUTAMIDE
     Dates: start: 201409
  7. JEVTANA [Suspect]
     Active Substance: CABAZITAXEL
     Dates: start: 201802
  8. CASODEX [Suspect]
     Active Substance: BICALUTAMIDE
     Dates: start: 20140120
  9. KETOCONAZOLE. [Suspect]
     Active Substance: KETOCONAZOLE
     Dates: start: 201610

REACTIONS (3)
  - Disease progression [Unknown]
  - Prostatic specific antigen increased [Not Recovered/Not Resolved]
  - Prostate cancer metastatic [Unknown]

NARRATIVE: CASE EVENT DATE: 20140929
